FAERS Safety Report 10344659 (Version 1)
Quarter: 2014Q3

REPORT INFORMATION
  Report Type: Spontaneous
  Country: US (occurrence: US)
  Receive Date: 20140728
  Receipt Date: 20140728
  Transmission Date: 20150326
  Serious: No
  Sender: FDA-Public Use
  Company Number: 2014SP002672

PATIENT
  Sex: Female

DRUGS (1)
  1. METHOTREXATE [Suspect]
     Active Substance: METHOTREXATE
     Indication: RHEUMATOID ARTHRITIS

REACTIONS (8)
  - Emotional disorder [Unknown]
  - Malaise [Unknown]
  - Sinusitis [Unknown]
  - Rash [Unknown]
  - Oral pain [Unknown]
  - Migraine [Unknown]
  - Mood altered [Unknown]
  - Nausea [Unknown]
